FAERS Safety Report 14481535 (Version 3)
Quarter: 2018Q1

REPORT INFORMATION
  Report Type: Spontaneous
  Country: RU (occurrence: RU)
  Receive Date: 20180202
  Receipt Date: 20180221
  Transmission Date: 20180509
  Serious: Yes (Hospitalization)
  Sender: FDA-Public Use
  Company Number: RU-ASTRAZENECA-2017SE99200

PATIENT
  Age: 44 Year
  Sex: Male
  Weight: 76 kg

DRUGS (10)
  1. CRESTOR [Suspect]
     Active Substance: ROSUVASTATIN CALCIUM
     Indication: MYOCARDIAL INFARCTION
     Route: 048
     Dates: end: 201707
  2. GLYCYRRHIZIC ACID [Concomitant]
     Active Substance: GLYCYRRHIZIN
  3. CRESTOR [Suspect]
     Active Substance: ROSUVASTATIN CALCIUM
     Indication: MYOCARDIAL INFARCTION
     Route: 048
     Dates: start: 201702
  4. THROMBO ASS [Concomitant]
     Active Substance: ASPIRIN
  5. CRESTOR [Suspect]
     Active Substance: ROSUVASTATIN CALCIUM
     Indication: MYOCARDIAL INFARCTION
     Route: 048
  6. EKVATOR [Concomitant]
     Indication: BLOOD PRESSURE INCREASED
  7. PERINDOPRIL [Concomitant]
     Active Substance: PERINDOPRIL
  8. BRILINTA [Suspect]
     Active Substance: TICAGRELOR
     Route: 048
     Dates: start: 201702, end: 201802
  9. CRESTOR [Suspect]
     Active Substance: ROSUVASTATIN CALCIUM
     Indication: MYOCARDIAL INFARCTION
     Dosage: 10 MG INTO 4 PARTS AND TAKES 1 TIME PER DAY
     Route: 048
  10. MOXONIDINE [Concomitant]
     Active Substance: MOXONIDINE

REACTIONS (7)
  - Blood pressure increased [Recovered/Resolved]
  - Drug dose omission [Unknown]
  - Alanine aminotransferase increased [Recovered/Resolved]
  - Intentional product misuse [Not Recovered/Not Resolved]
  - Hypoaesthesia [Recovered/Resolved]
  - Aspartate aminotransferase increased [Recovered/Resolved]
  - Angina pectoris [Recovered/Resolved]

NARRATIVE: CASE EVENT DATE: 201702
